FAERS Safety Report 23803305 (Version 2)
Quarter: 2024Q2

REPORT INFORMATION
  Report Type: Spontaneous
  Country: PH (occurrence: PH)
  Receive Date: 20240501
  Receipt Date: 20240605
  Transmission Date: 20240715
  Serious: Yes (Hospitalization, Other)
  Sender: FDA-Public Use
  Company Number: PH-AUROBINDO-AUR-APL-2024-019803

PATIENT
  Age: 38 Year
  Sex: Female

DRUGS (2)
  1. LETROZOLE [Suspect]
     Active Substance: LETROZOLE
     Indication: In vitro fertilisation
     Dosage: 2.5 MILLIGRAM FOR 2 MONTHS
     Route: 065
  2. CETRORELIX [Suspect]
     Active Substance: CETRORELIX
     Indication: In vitro fertilisation
     Dosage: 0.25 MILLIGRAM
     Route: 065

REACTIONS (1)
  - Ovarian hyperstimulation syndrome [Unknown]
